FAERS Safety Report 19785306 (Version 1)
Quarter: 2021Q3

REPORT INFORMATION
  Report Type: Spontaneous
  Country: ES (occurrence: ES)
  Receive Date: 20210903
  Receipt Date: 20210903
  Transmission Date: 20211014
  Serious: Yes (Disabling, Other)
  Sender: FDA-Public Use
  Company Number: ES-ASTRAZENECA-2021A706300

PATIENT
  Sex: Male

DRUGS (1)
  1. DURVALUMAB. [Suspect]
     Active Substance: DURVALUMAB
     Indication: CLEAR CELL RENAL CELL CARCINOMA
     Route: 042

REACTIONS (3)
  - Blindness [Recovering/Resolving]
  - Diffuse uveal melanocytic proliferation [Recovering/Resolving]
  - Immune-mediated adverse reaction [Recovering/Resolving]
